FAERS Safety Report 9452413 (Version 2)
Quarter: 2014Q1

REPORT INFORMATION
  Report Type: Report from Study
  Country: CA (occurrence: CA)
  Receive Date: 20130812
  Receipt Date: 20140205
  Transmission Date: 20141002
  Serious: Yes (Hospitalization)
  Sender: FDA-Public Use
  Company Number: CA-JNJFOC-20130801559

PATIENT
  Sex: Male
  Weight: 56.5 kg

DRUGS (3)
  1. REMICADE [Suspect]
     Indication: CROHN^S DISEASE
     Route: 042
     Dates: start: 20120607
  2. MULTIVITAMINS [Concomitant]
     Route: 065
  3. IRON SUPPLEMENT [Concomitant]
     Route: 065

REACTIONS (2)
  - Post procedural complication [Not Recovered/Not Resolved]
  - Intestinal resection [Unknown]
